FAERS Safety Report 5566958-2 (Version None)
Quarter: 2007Q4

REPORT INFORMATION
  Report Type: 
  Country: None (occurrence: None)
  Receive Date: 20071219
  Receipt Date: 20070628
  Transmission Date: 20080405
  Serious: No
  Sender: FDA-Public Use
  Company Number: US-BRISTOL-MYERS SQUIBB COMPANY-13830237

PATIENT
  Sex: Female
  Weight: 96 kg

DRUGS (6)
  1. PRAVACHOL [Suspect]
     Dates: start: 20070610
  2. PLAVIX [Concomitant]
  3. LIPITOR [Concomitant]
  4. FISH OIL [Concomitant]
  5. ASPIRIN [Concomitant]
  6. NORVASC [Concomitant]

REACTIONS (1)
  - BLOOD PRESSURE INCREASED [None]
